FAERS Safety Report 15913099 (Version 2)
Quarter: 2020Q1

REPORT INFORMATION
  Report Type: Spontaneous
  Country: US (occurrence: US)
  Receive Date: 20190204
  Receipt Date: 20200206
  Transmission Date: 20200409
  Serious: Yes (Other)
  Sender: FDA-Public Use
  Company Number: US-ABBVIE-18K-163-2525784-00

PATIENT
  Sex: Female

DRUGS (9)
  1. ENBREL [Suspect]
     Active Substance: ETANERCEPT
     Indication: RHEUMATOID ARTHRITIS
     Route: 065
  2. LUKIN [Concomitant]
     Indication: PRODUCT USED FOR UNKNOWN INDICATION
  3. HUMIRA [Suspect]
     Active Substance: ADALIMUMAB
     Indication: RHEUMATOID ARTHRITIS
     Route: 058
  4. ENBREL [Suspect]
     Active Substance: ETANERCEPT
     Route: 065
  5. METHOTREXATE. [Suspect]
     Active Substance: METHOTREXATE
     Indication: RHEUMATOID ARTHRITIS
     Route: 048
  6. IBUPROFEN. [Concomitant]
     Active Substance: IBUPROFEN
     Indication: PRODUCT USED FOR UNKNOWN INDICATION
  7. VITAMIN D [Concomitant]
     Active Substance: VITAMIN D NOS
     Indication: PRODUCT USED FOR UNKNOWN INDICATION
  8. XELJANZ XR [Concomitant]
     Active Substance: TOFACITINIB CITRATE
     Indication: RHEUMATOID ARTHRITIS
  9. CYCLOBENZAPRIN HCL [Concomitant]
     Active Substance: CYCLOBENZAPRINE HYDROCHLORIDE
     Indication: PRODUCT USED FOR UNKNOWN INDICATION

REACTIONS (13)
  - Asthenia [Unknown]
  - Fatigue [Unknown]
  - Facial spasm [Unknown]
  - Multiple sclerosis [Unknown]
  - Optic neuritis [Unknown]
  - Headache [Unknown]
  - Liver function test abnormal [Unknown]
  - Dyspnoea [Unknown]
  - Drug ineffective [Unknown]
  - Nervous system disorder [Unknown]
  - Muscle twitching [Unknown]
  - SLE arthritis [Unknown]
  - Arthritis [Unknown]

NARRATIVE: CASE EVENT DATE: 2018
